FAERS Safety Report 6143746-X (Version None)
Quarter: 2009Q2

REPORT INFORMATION
  Report Type: 
  Country: None (occurrence: None)
  Receive Date: 20090403
  Receipt Date: 20090325
  Transmission Date: 20091009
  Serious: Yes (Other)
  Sender: FDA-Public Use
  Company Number: US-ABBOTT-09P-163-0565454-00

PATIENT
  Age: 28 Year
  Sex: Female

DRUGS (13)
  1. RITONAVIR SOFT GELATIN CAPSULES [Suspect]
     Indication: HIV INFECTION
     Route: 048
     Dates: start: 20060621, end: 20090128
  2. REYATAZ [Concomitant]
     Indication: HIV INFECTION
     Route: 048
     Dates: start: 20060621, end: 20090128
  3. EPZICOM [Concomitant]
     Indication: HIV INFECTION
     Dosage: 600/300 MG
     Route: 048
     Dates: start: 20060621, end: 20090128
  4. ALBUTEROL [Concomitant]
     Indication: DRUG USE FOR UNKNOWN INDICATION
  5. CLARITIN [Concomitant]
     Indication: DRUG USE FOR UNKNOWN INDICATION
  6. FLONASE [Concomitant]
     Indication: DRUG USE FOR UNKNOWN INDICATION
  7. MINOCYCLINE HCL [Concomitant]
     Indication: DRUG USE FOR UNKNOWN INDICATION
  8. UREA [Concomitant]
     Indication: DRUG USE FOR UNKNOWN INDICATION
  9. VITAMIN TAB [Concomitant]
     Indication: DRUG USE FOR UNKNOWN INDICATION
  10. NORETHINDRONE [Concomitant]
     Indication: CONTRACEPTION
     Route: 048
     Dates: end: 20081101
  11. QUADRIVALENT HUMAN PAPILLOMAVIRUS VACCINE [Concomitant]
     Indication: PAPILLOMA VIRAL INFECTION
     Dates: start: 20080326, end: 20080326
  12. QUADRIVALENT HUMAN PAPILLOMAVIRUS VACCINE [Concomitant]
     Dates: start: 20080523, end: 20080523
  13. QUADRIVALENT HUMAN PAPILLOMAVIRUS VACCINE [Concomitant]
     Dates: start: 20080908, end: 20080908

REACTIONS (1)
  - ABORTION SPONTANEOUS [None]
